FAERS Safety Report 15346944 (Version 1)
Quarter: 2018Q3

REPORT INFORMATION
  Report Type: Spontaneous
  Country: US (occurrence: US)
  Receive Date: 20180828
  Receipt Date: 20180828
  Transmission Date: 20181010
  Serious: Yes (Other)
  Sender: FDA-Public Use
  Company Number: None

PATIENT
  Age: 36 Year
  Sex: Female
  Weight: 60.75 kg

DRUGS (17)
  1. SYMBICORT [Concomitant]
     Active Substance: BUDESONIDE\FORMOTEROL FUMARATE DIHYDRATE
  2. OMEPRAZOLE. [Concomitant]
     Active Substance: OMEPRAZOLE
  3. MS CONTIN [Concomitant]
     Active Substance: MORPHINE SULFATE
  4. PROAIR INHALER [Concomitant]
     Active Substance: ALBUTEROL SULFATE
  5. METHOTREXATE. [Concomitant]
     Active Substance: METHOTREXATE
  6. RITUXIMAB. [Concomitant]
     Active Substance: RITUXIMAB
  7. OXYCODONE [Concomitant]
     Active Substance: OXYCODONE
  8. FLEXERIL [Concomitant]
     Active Substance: CYCLOBENZAPRINE HYDROCHLORIDE
  9. FOLIC ACID. [Concomitant]
     Active Substance: FOLIC ACID
  10. PRVIGEN (LVLG) [Concomitant]
  11. MELATONIN [Concomitant]
     Active Substance: MELATONIN
  12. ACTEMRA [Suspect]
     Active Substance: TOCILIZUMAB
     Indication: RHEUMATOID ARTHRITIS
     Dosage: ?          OTHER FREQUENCY:MONTHLY;OTHER ROUTE:INFUSION?
     Dates: start: 20161118, end: 20170603
  13. MULTIVITAMIN [Concomitant]
     Active Substance: VITAMINS
  14. L?LYSINE [Concomitant]
     Active Substance: LYSINE
  15. ZOFRAN [Concomitant]
     Active Substance: ONDANSETRON HYDROCHLORIDE
  16. PREDNISONE. [Concomitant]
     Active Substance: PREDNISONE
  17. ZYRTEC [Concomitant]
     Active Substance: CETIRIZINE HYDROCHLORIDE

REACTIONS (6)
  - Pain in extremity [None]
  - Contusion [None]
  - Infection [None]
  - Hypersensitivity [None]
  - Phlebitis superficial [None]
  - Thrombosis [None]

NARRATIVE: CASE EVENT DATE: 20170605
